FAERS Safety Report 8515790-6 (Version None)
Quarter: 2012Q3

REPORT INFORMATION
  Report Type: 
  Country: None (occurrence: None)
  Receive Date: 20120705
  Receipt Date: 20120622
  Transmission Date: 20120928
  Serious: Yes (Other)
  Sender: FDA-Public Use
  Company Number: 2012SP034973

PATIENT
  Age: 60 Year
  Sex: Male
  Weight: 52 kg

DRUGS (10)
  1. PEG-INTRON [Suspect]
     Indication: HEPATITIS C
     Dosage: 1.5 MCG/KG;QW;SC 0.75 MCG/KG;QW;SC
     Route: 058
     Dates: start: 20120413, end: 20120504
  2. PEG-INTRON [Suspect]
     Indication: HEPATITIS C
     Dosage: 1.5 MCG/KG;QW;SC 0.75 MCG/KG;QW;SC
     Route: 058
     Dates: start: 20120511, end: 20120518
  3. VILDAGLIPTIN [Concomitant]
  4. URDENACIN [Concomitant]
  5. REBETOL [Suspect]
     Indication: HEPATITIS C
     Dosage: 600 MG;QD;PO 200 MG;QD;PO
     Route: 048
     Dates: start: 20120511, end: 20120518
  6. REBETOL [Suspect]
     Indication: HEPATITIS C
     Dosage: 600 MG;QD;PO 200 MG;QD;PO
     Route: 048
     Dates: start: 20120413, end: 20120510
  7. TELAVIC (ANTIVIRALS NOS) [Suspect]
     Indication: HEPATITIS C
     Dosage: 2250 MG;QD;PO 1500 MG;QD;PO
     Route: 048
     Dates: start: 20120414, end: 20120514
  8. TELAVIC (ANTIVIRALS NOS) [Suspect]
     Indication: HEPATITIS C
     Dosage: 2250 MG;QD;PO 1500 MG;QD;PO
     Route: 048
     Dates: start: 20120515, end: 20120518
  9. REZALTAS [Concomitant]
  10. LENDORMIN D [Concomitant]

REACTIONS (5)
  - PLATELET COUNT DECREASED [None]
  - BLOOD UREA INCREASED [None]
  - HAEMOGLOBIN DECREASED [None]
  - BLOOD CREATININE INCREASED [None]
  - BLOOD URIC ACID INCREASED [None]
